FAERS Safety Report 5854487-8 (Version None)
Quarter: 2008Q3

REPORT INFORMATION
  Report Type: 
  Country: None (occurrence: None)
  Receive Date: 20080822
  Receipt Date: 20080707
  Transmission Date: 20090109
  Serious: No
  Sender: FDA-Public Use
  Company Number: US-ABBOTT-07P-163-0370876-00

PATIENT
  Sex: Female
  Weight: 57.204 kg

DRUGS (7)
  1. SYNTHROID [Suspect]
     Indication: THYROID NEOPLASM
     Route: 048
     Dates: start: 19770101, end: 19820101
  2. SYNTHROID [Suspect]
     Indication: HORMONE REPLACEMENT THERAPY
  3. SYNTHROID [Suspect]
     Indication: HORMONE REPLACEMENT THERAPY
     Dates: start: 19820101, end: 20061001
  4. SYNTHROID [Suspect]
     Indication: HORMONE REPLACEMENT THERAPY
     Dates: start: 20061001, end: 20061201
  5. SYNTHROID [Suspect]
     Dates: start: 20061201
  6. ANXIETY MEDICATION [Concomitant]
     Indication: DRUG USE FOR UNKNOWN INDICATION
  7. MELATONIN [Concomitant]
     Indication: DRUG USE FOR UNKNOWN INDICATION

REACTIONS (6)
  - ALOPECIA [None]
  - ANXIETY [None]
  - FEELING ABNORMAL [None]
  - GASTROOESOPHAGEAL REFLUX DISEASE [None]
  - INSOMNIA [None]
  - MOOD SWINGS [None]
